FAERS Safety Report 18695096 (Version 1)
Quarter: 2021Q1

REPORT INFORMATION
  Report Type: Spontaneous
  Country: US (occurrence: US)
  Receive Date: 20210102
  Receipt Date: 20210102
  Transmission Date: 20210419
  Serious: No
  Sender: FDA-Public Use
  Company Number: None

PATIENT
  Age: 34 Year
  Sex: Female
  Weight: 51.26 kg

DRUGS (1)
  1. BUPRENORPHINE ?NALOXONE [Suspect]
     Active Substance: BUPRENORPHINE HYDROCHLORIDE\NALOXONE HYDROCHLORIDE
     Dosage: ?          OTHER DOSE:8MG 2MG;?
     Route: 048
     Dates: start: 2018

REACTIONS (1)
  - Gingival discomfort [None]

NARRATIVE: CASE EVENT DATE: 20201203
